FAERS Safety Report 12060187 (Version 4)
Quarter: 2018Q1

REPORT INFORMATION
  Report Type: Spontaneous
  Country: US (occurrence: US)
  Receive Date: 20160210
  Receipt Date: 20180320
  Transmission Date: 20180508
  Serious: No
  Sender: FDA-Public Use
  Company Number: US-ACTELION PHARMACEUTICALS US, INC.-A-US2014-108585

PATIENT
  Age: 71 Year
  Sex: Female
  Weight: 78.46 kg

DRUGS (10)
  1. VELETRI [Suspect]
     Active Substance: EPOPROSTENOL
     Dosage: 18.5 NG/KG, PER MIN
     Route: 042
  2. VELETRI [Suspect]
     Active Substance: EPOPROSTENOL
     Indication: PULMONARY ARTERIAL HYPERTENSION
     Dosage: 14 NG/KG, PER MIN
     Route: 042
     Dates: start: 20141017
  3. POTASSIUM [Concomitant]
     Active Substance: POTASSIUM
     Dosage: 10 MEQ, UNK
  4. ADCIRCA [Concomitant]
     Active Substance: TADALAFIL
     Dosage: 40 MG, QD
  5. OXYGEN. [Concomitant]
     Active Substance: OXYGEN
     Dosage: 3.5 L/MIN CONTINUOUS, 4 L/MIN AT NIGHT
  6. COUMADIN [Concomitant]
     Active Substance: WARFARIN SODIUM
     Dosage: 2.5 MG, QD
  7. DILTIAZEM. [Concomitant]
     Active Substance: DILTIAZEM
  8. VELETRI [Suspect]
     Active Substance: EPOPROSTENOL
     Dosage: 18.7 NG/KG, PER MIN
     Route: 042
  9. METOPROLOL. [Concomitant]
     Active Substance: METOPROLOL
     Dosage: 50 MG, UNK
  10. SILDENAFIL CITRATE. [Concomitant]
     Active Substance: SILDENAFIL CITRATE

REACTIONS (9)
  - Weight decreased [Unknown]
  - Dizziness [Unknown]
  - Headache [Unknown]
  - Palpitations [Unknown]
  - Pain in jaw [Unknown]
  - Blood pressure increased [Unknown]
  - Pain in extremity [Unknown]
  - Neck pain [Unknown]
  - Dyspnoea exertional [Unknown]

NARRATIVE: CASE EVENT DATE: 20141111
